FAERS Safety Report 7490944-9 (Version None)
Quarter: 2011Q2

REPORT INFORMATION
  Report Type: 
  Country: None (occurrence: None)
  Receive Date: 20110517
  Receipt Date: 20110517
  Transmission Date: 20111010
  Serious: Yes (Life-Threatening, Hospitalization)
  Sender: FDA-Public Use
  Company Number: None

PATIENT
  Sex: Male
  Weight: 109.7705 kg

DRUGS (6)
  1. PRADAXA [Suspect]
     Indication: ATRIAL FIBRILLATION
     Dosage: 150 MG EVERY 12 HOURS PO
     Route: 048
     Dates: start: 20110101, end: 20110427
  2. AVAPRO [Concomitant]
  3. COREG [Concomitant]
  4. FLECAINIDE ACETATE [Concomitant]
  5. LASIX [Concomitant]
  6. POTASSIUM CHLORIDE [Concomitant]

REACTIONS (3)
  - CEREBROVASCULAR ACCIDENT [None]
  - ATRIAL THROMBOSIS [None]
  - TRANSIENT ISCHAEMIC ATTACK [None]
